FAERS Safety Report 8863294 (Version 1)
Quarter: 2012Q4

REPORT INFORMATION
  Report Type: 
  Country: US (occurrence: US)
  Receive Date: 20121025
  Receipt Date: 20121025
  Transmission Date: 20130627
  Serious: Yes (Other)
  Sender: FDA-Public Use
  Company Number: US-ROCHE-1145851

PATIENT

DRUGS (2)
  1. BEVACIZUMAB [Suspect]
     Indication: PROSTATE CANCER
     Route: 042
  2. DOCETAXEL [Suspect]
     Indication: PROSTATE CANCER
     Route: 042

REACTIONS (6)
  - Febrile neutropenia [Not Recovered/Not Resolved]
  - Neutropenia [Unknown]
  - Hypersensitivity [Unknown]
  - Cough [Unknown]
  - Hyperglycaemia [Unknown]
  - Lymphopenia [Unknown]
